FAERS Safety Report 6939769-0 (Version None)
Quarter: 2010Q3

REPORT INFORMATION
  Report Type: 
  Country: None (occurrence: None)
  Receive Date: 20100825
  Receipt Date: 20100817
  Transmission Date: 20110219
  Serious: No
  Sender: FDA-Public Use
  Company Number: US-BIOGENIDEC-2010BI028760

PATIENT
  Age: 54 Year
  Sex: Female

DRUGS (2)
  1. TYSABRI [Suspect]
     Indication: MULTIPLE SCLEROSIS
     Route: 042
     Dates: start: 20090901
  2. AMPYRA [Concomitant]
     Indication: MYELITIS TRANSVERSE
     Route: 048
     Dates: start: 20100801

REACTIONS (4)
  - ARTERIAL RUPTURE [None]
  - FALL [None]
  - PAIN IN EXTREMITY [None]
  - SKIN LACERATION [None]
